FAERS Safety Report 9200878 (Version 1)
Quarter: 2013Q2

REPORT INFORMATION
  Report Type: Report from Study
  Country: DE (occurrence: DE)
  Receive Date: 20130401
  Receipt Date: 20130401
  Transmission Date: 20140414
  Serious: Yes (Hospitalization)
  Sender: FDA-Public Use
  Company Number: DE-TEVA-394489ISR

PATIENT
  Age: 75 Year
  Sex: Female
  Weight: 77 kg

DRUGS (3)
  1. PACLITAXEL [Suspect]
     Dosage: 318 MILLIGRAM DAILY; DATE OF LAST DOSE PRIOR TO SAE: 17-JAN-2013
     Route: 042
     Dates: start: 20120704, end: 20130227
  2. CARBOPLATIN [Suspect]
     Dosage: 550 MILLIGRAM DAILY; DATE OF LAST DOSE PRIOR TO SAE: 17-JAN-2013
     Route: 042
     Dates: start: 20120704, end: 20130227
  3. BEVACIZUMAB [Suspect]
     Dosage: 1000 MILLIGRAM DAILY; DATE OF LAST DOSE PRIOR TO SAE: 30-JAN-2013
     Route: 042
     Dates: start: 20120704, end: 20130227

REACTIONS (1)
  - Cerebral ischaemia [Recovered/Resolved]
